FAERS Safety Report 12114874 (Version 1)
Quarter: 2016Q1

REPORT INFORMATION
  Report Type: Spontaneous
  Country: US (occurrence: None)
  Receive Date: 20160224
  Receipt Date: 20160224
  Transmission Date: 20160526
  Serious: No
  Sender: FDA-Public Use
  Company Number: None

PATIENT
  Age: 65 Year
  Sex: Female

DRUGS (1)
  1. TECFIDERA [Suspect]
     Active Substance: DIMETHYL FUMARATE
     Indication: MULTIPLE SCLEROSIS
     Dosage: 1 BID ORAL
     Route: 048
     Dates: start: 20151215, end: 20160222

REACTIONS (3)
  - Rash [None]
  - Peripheral swelling [None]
  - Cardiac disorder [None]

NARRATIVE: CASE EVENT DATE: 20160222
